FAERS Safety Report 5010214-8 (Version None)
Quarter: 2006Q2

REPORT INFORMATION
  Report Type: 
  Country: None (occurrence: None)
  Receive Date: 20060404
  Receipt Date: 20051216
  Transmission Date: 20061013
  Serious: No
  Sender: FDA-Public Use
  Company Number: US200512002962

PATIENT
  Age: 57 Year
  Sex: Female

DRUGS (2)
  1. CYMBALTA [Suspect]
     Indication: ANXIETY
     Dosage: 60 MG, DAILY (1/D)
     Dates: start: 20040101
  2. SEROQUEL /UNK/ (QUETIAPINE FUMARATE) [Concomitant]

REACTIONS (4)
  - DEPRESSION [None]
  - HEAD DISCOMFORT [None]
  - HYPOAESTHESIA [None]
  - TREMOR [None]
